FAERS Safety Report 5745566-4 (Version None)
Quarter: 2008Q2

REPORT INFORMATION
  Report Type: 
  Country: None (occurrence: None)
  Receive Date: 20080521
  Receipt Date: 20080509
  Transmission Date: 20081010
  Serious: Yes (Hospitalization, Other)
  Sender: FDA-Public Use
  Company Number: US-PFIZER INC-2008040545

PATIENT
  Sex: Male

DRUGS (2)
  1. GEODON [Suspect]
  2. CLOZAPINE [Suspect]
     Indication: PSYCHOTIC DISORDER
     Dosage: DAILY DOSE:300MG
     Route: 048

REACTIONS (2)
  - PSYCHIATRIC SYMPTOM [None]
  - PSYCHOTIC DISORDER [None]
